FAERS Safety Report 6088375-1 (Version None)
Quarter: 2009Q1

REPORT INFORMATION
  Report Type: 
  Country: None (occurrence: None)
  Receive Date: 20090224
  Receipt Date: 20090122
  Transmission Date: 20090719
  Serious: No
  Sender: FDA-Public Use
  Company Number: US-BAYER-US-2005-025438

PATIENT
  Age: 57 Year
  Sex: Female
  Weight: 45 kg

DRUGS (2)
  1. CLIMARA PRO [Suspect]
     Indication: HORMONE REPLACEMENT THERAPY
     Route: 062
     Dates: start: 20050201
  2. AMBIEN [Concomitant]
     Route: 048

REACTIONS (3)
  - APPLICATION SITE RASH [None]
  - HOT FLUSH [None]
  - NO ADVERSE EVENT [None]
